FAERS Safety Report 8901904 (Version 1)
Quarter: 2012Q4

REPORT INFORMATION
  Report Type: Spontaneous
  Country: US (occurrence: None)
  Receive Date: 20121109
  Receipt Date: 20121109
  Transmission Date: 20130627
  Serious: Yes (Hospitalization)
  Sender: FDA-Public Use
  Company Number: None

PATIENT
  Age: 66 Year
  Sex: Female
  Weight: 74.9 kg

DRUGS (1)
  1. HYDROCHLOROTHIAZIDE\LISINOPRIL [Suspect]
     Indication: HYPERTENSION
     Dosage: 12.5/20 MG EVERY DAY PO
     Route: 048
     Dates: start: 20120715, end: 20121019

REACTIONS (1)
  - Angioedema [None]
